FAERS Safety Report 19296547 (Version 1)
Quarter: 2021Q2

REPORT INFORMATION
  Report Type: Spontaneous
  Country: US (occurrence: US)
  Receive Date: 20210524
  Receipt Date: 20210524
  Transmission Date: 20210717
  Serious: No
  Sender: FDA-Public Use
  Company Number: US-CADILA HEALTHCARE LIMITED-US-ZYDUS-065003

PATIENT

DRUGS (2)
  1. VACCINES [Concomitant]
     Active Substance: UNSPECIFIED INGREDIENT
     Indication: COVID-19 PROPHYLAXIS
  2. BOSENTAN 62.5 MG TABLETS [Suspect]
     Active Substance: BOSENTAN
     Indication: PRODUCT USED FOR UNKNOWN INDICATION
     Dosage: 62.5 MILLIGRAM

REACTIONS (8)
  - Disturbance in attention [Unknown]
  - Urinary hesitation [Unknown]
  - Hepatic lesion [Unknown]
  - Ear pain [Unknown]
  - Arthralgia [Unknown]
  - Back pain [Unknown]
  - Hypoaesthesia [Unknown]
  - Illness [Unknown]

NARRATIVE: CASE EVENT DATE: 202103
